FAERS Safety Report 9602981 (Version 1)
Quarter: 2013Q4

REPORT INFORMATION
  Report Type: Spontaneous
  Country: US (occurrence: US)
  Receive Date: 20131007
  Receipt Date: 20131007
  Transmission Date: 20140711
  Serious: Yes (Other)
  Sender: FDA-Public Use
  Company Number: US-GLAXOSMITHKLINE-A1044076A

PATIENT
  Age: 13 Year
  Sex: Female

DRUGS (2)
  1. TAGAMET HB 200 [Suspect]
     Indication: SKIN PAPILLOMA
     Dosage: 200MG AS DIRECTED
     Dates: start: 201108, end: 201109
  2. NO CONCURRENT MEDICATIONS [Concomitant]

REACTIONS (3)
  - Hiccups [Unknown]
  - Nausea [Unknown]
  - Off label use [Unknown]
